FAERS Safety Report 20565788 (Version 1)
Quarter: 2022Q1

REPORT INFORMATION
  Report Type: Spontaneous
  Country: US (occurrence: None)
  Receive Date: 20220307
  Receipt Date: 20220307
  Transmission Date: 20220424
  Serious: No
  Sender: FDA-Public Use
  Company Number: None

PATIENT
  Age: 68 Year
  Sex: Male

DRUGS (1)
  1. SUNITINIB [Suspect]
     Active Substance: SUNITINIB
     Indication: Bone neoplasm
     Dosage: FREQUENCY : DAILY;?
     Route: 048
     Dates: start: 202108

REACTIONS (9)
  - Urinary tract infection [None]
  - Asthenia [None]
  - Fatigue [None]
  - Decreased appetite [None]
  - Dehydration [None]
  - Abdominal discomfort [None]
  - Diarrhoea [None]
  - Vomiting [None]
  - Drug interaction [None]

NARRATIVE: CASE EVENT DATE: 20220214
